FAERS Safety Report 16923504 (Version 6)
Quarter: 2020Q2

REPORT INFORMATION
  Report Type: Report from Study
  Country: CA (occurrence: CA)
  Receive Date: 20191016
  Receipt Date: 20200512
  Transmission Date: 20200713
  Serious: Yes (Hospitalization, Other)
  Sender: FDA-Public Use
  Company Number: CA-ROCHE-2315304

PATIENT
  Age: 62 Year
  Sex: Female

DRUGS (12)
  1. OCREVUS [Suspect]
     Active Substance: OCRELIZUMAB
     Indication: RELAPSING-REMITTING MULTIPLE SCLEROSIS
     Dosage: THEN 600 MG EVERY 6 MONTH
     Route: 042
     Dates: start: 20190415
  2. LANSOPRAZOLE. [Concomitant]
     Active Substance: LANSOPRAZOLE
  3. ALPRAZOLAM. [Concomitant]
     Active Substance: ALPRAZOLAM
     Route: 065
  4. CITALOPRAM [Concomitant]
     Active Substance: CITALOPRAM HYDROBROMIDE
  5. CALCIUM [Concomitant]
     Active Substance: CALCIUM
  6. RANITIDINE. [Concomitant]
     Active Substance: RANITIDINE
     Dosage: ONCE DAILY AT DINNER TIME
     Route: 065
     Dates: start: 20200307
  7. ALENDRONATE [Concomitant]
     Active Substance: ALENDRONATE SODIUM
  8. TOPIRAMATE. [Concomitant]
     Active Substance: TOPIRAMATE
  9. BACLOFEN. [Concomitant]
     Active Substance: BACLOFEN
  10. ASPIRIN [ACETYLSALICYLIC ACID] [Concomitant]
     Active Substance: ASPIRIN
  11. BENADRYL [Concomitant]
     Active Substance: DIPHENHYDRAMINE HYDROCHLORIDE
  12. TOVIAZ [Concomitant]
     Active Substance: FESOTERODINE FUMARATE

REACTIONS (13)
  - Skin plaque [Not Recovered/Not Resolved]
  - Oropharyngeal pain [Recovering/Resolving]
  - Pneumonia [Recovered/Resolved]
  - Back pain [Recovering/Resolving]
  - Fatigue [Not Recovered/Not Resolved]
  - Dysstasia [Not Recovered/Not Resolved]
  - Feeling hot [Not Recovered/Not Resolved]
  - Dysphagia [Recovered/Resolved]
  - Dyspnoea [Not Recovered/Not Resolved]
  - Feeding disorder [Recovered/Resolved]
  - Cough [Recovering/Resolving]
  - Asthenia [Not Recovered/Not Resolved]
  - Lung disorder [Unknown]

NARRATIVE: CASE EVENT DATE: 20190426
